FAERS Safety Report 8855019 (Version 1)
Quarter: 2012Q4

REPORT INFORMATION
  Report Type: 
  Country: FR (occurrence: FR)
  Receive Date: 20121023
  Receipt Date: 20121023
  Transmission Date: 20130627
  Serious: Yes (Other)
  Sender: FDA-Public Use
  Company Number: PHHY2012FR094081

PATIENT
  Sex: Female

DRUGS (1)
  1. AFINITOR [Suspect]
     Indication: CARCINOID SYNDROME
     Dates: start: 201109

REACTIONS (5)
  - Ovarian disorder [Unknown]
  - Incisional hernia [Unknown]
  - Inflammation [Unknown]
  - Ascites [Unknown]
  - Anaemia [Unknown]
